FAERS Safety Report 22361935 (Version 4)
Quarter: 2023Q2

REPORT INFORMATION
  Report Type: Report from Study
  Country: CN (occurrence: None)
  Receive Date: 20230524
  Receipt Date: 20230629
  Transmission Date: 20230721
  Serious: Yes (Hospitalization)
  Sender: FDA-Public Use
  Company Number: CN-ROCHE-3351583

PATIENT
  Age: 61 Year
  Sex: Male
  Weight: 48.7 kg

DRUGS (20)
  1. MOSUNETUZUMAB [Suspect]
     Active Substance: MOSUNETUZUMAB
     Indication: Non-Hodgkin^s lymphoma
     Dosage: ON 21/APR/2023, MOST RECENT DOSE (1 MG) OF STUDY DRUG MOSUNETUZUMAB PRIOR TO AE/SAE
     Route: 042
     Dates: start: 20220727
  2. LENALIDOMIDE [Suspect]
     Active Substance: LENALIDOMIDE
     Indication: Non-Hodgkin^s lymphoma
     Dosage: ON 21/APR/2023, MOST RECENT DOSE (20 MG) OF STUDY DRUG LENALIDOMIDE PRIOR TO AE/SAE
     Route: 048
     Dates: start: 20220907
  3. AMLODIPINE BESYLATE AND BENAZEPRIL HYDROCHLORIDE TABLETS(I) [Concomitant]
     Indication: Hypertension
     Route: 048
     Dates: start: 2019
  4. FERRIC POLYSACCHARIDE COMPLEX [Concomitant]
     Active Substance: FERRIC POLYSACCHARIDE COMPLEX
     Indication: Anaemia
     Route: 048
     Dates: start: 20220803
  5. FERRIC POLYSACCHARIDE COMPLEX [Concomitant]
     Active Substance: FERRIC POLYSACCHARIDE COMPLEX
     Route: 048
     Dates: start: 20230405
  6. ACARBOSE [Concomitant]
     Active Substance: ACARBOSE
     Indication: Type 2 diabetes mellitus
     Route: 048
     Dates: start: 20230312
  7. METFORMIN HYDROCHLORIDE [Concomitant]
     Active Substance: METFORMIN HYDROCHLORIDE
     Indication: Type 2 diabetes mellitus
     Route: 048
     Dates: start: 20230312
  8. DAPAGLIFLOZIN [Concomitant]
     Active Substance: DAPAGLIFLOZIN
     Route: 048
     Dates: start: 20230312
  9. MEGESTROL ACETATE [Concomitant]
     Active Substance: MEGESTROL ACETATE
     Indication: Weight decreased
     Route: 048
     Dates: start: 20230412, end: 20230419
  10. GLIQUIDONE [Concomitant]
     Active Substance: GLIQUIDONE
     Route: 048
     Dates: start: 20230413, end: 20230516
  11. DEXTROSE\SODIUM CHLORIDE [Concomitant]
     Active Substance: DEXTROSE\SODIUM CHLORIDE
     Route: 042
     Dates: start: 20230420
  12. DIPHENHYDRAMINE HYDROCHLORIDE [Concomitant]
     Active Substance: DIPHENHYDRAMINE HYDROCHLORIDE
     Route: 030
     Dates: start: 20230421, end: 20230421
  13. ACETAMINOPHEN\CAFFEINE [Concomitant]
     Active Substance: ACETAMINOPHEN\CAFFEINE
     Route: 048
     Dates: start: 20230421, end: 20230421
  14. DEXAMETHASONE SODIUM PHOSPHATE [Concomitant]
     Active Substance: DEXAMETHASONE SODIUM PHOSPHATE
     Route: 042
     Dates: start: 20230421, end: 20230421
  15. ILAPRAZOLE [Concomitant]
     Active Substance: ILAPRAZOLE
     Route: 042
     Dates: start: 20230421, end: 20230421
  16. OXYGEN [Concomitant]
     Active Substance: OXYGEN
     Indication: Hypoxia
  17. URSODIOL [Concomitant]
     Active Substance: URSODIOL
     Indication: Blood bilirubin increased
     Route: 048
     Dates: start: 20230428, end: 20230511
  18. DEXAMETHASONE ACETATE [Concomitant]
     Active Substance: DEXAMETHASONE ACETATE
     Indication: Cytokine release syndrome
     Route: 048
     Dates: start: 20230505, end: 20230525
  19. ILAPRAZOLE [Concomitant]
     Active Substance: ILAPRAZOLE
     Indication: Cytokine release syndrome
     Route: 048
     Dates: start: 20230505, end: 20230510
  20. CEFUROXIME AXETIL [Concomitant]
     Active Substance: CEFUROXIME AXETIL
     Route: 048
     Dates: start: 20230510, end: 20230516

REACTIONS (1)
  - COVID-19 pneumonia [Not Recovered/Not Resolved]

NARRATIVE: CASE EVENT DATE: 20230515
